FAERS Safety Report 8769580 (Version 1)
Quarter: 2012Q4

REPORT INFORMATION
  Report Type: 
  Country: US (occurrence: US)
  Receive Date: 20120905
  Receipt Date: 20120905
  Transmission Date: 20130627
  Serious: No
  Sender: FDA-Public Use
  Company Number: US-PFIZER INC-2012214127

PATIENT
  Age: 42 Year
  Sex: Male
  Weight: 109 kg

DRUGS (4)
  1. NEURONTIN [Suspect]
     Indication: NEUROPATHY PERIPHERAL
     Dosage: 300 mg, 3x/day
     Route: 048
     Dates: start: 201012, end: 201206
  2. NEURONTIN [Suspect]
     Indication: PAIN
     Dosage: 300 mg, daily
     Route: 048
     Dates: start: 201206, end: 201206
  3. LISINOPRIL [Concomitant]
     Indication: HYPERTENSION
     Dosage: 200 mg, daily
  4. HYDROCHLOROTHIAZIDE [Concomitant]
     Indication: HYPERTENSION
     Dosage: 12.5 mg, daily

REACTIONS (2)
  - Aggression [Recovering/Resolving]
  - Blood alkaline phosphatase decreased [Unknown]
